FAERS Safety Report 21484482 (Version 1)
Quarter: 2022Q4

REPORT INFORMATION
  Report Type: Spontaneous
  Country: FR (occurrence: FR)
  Receive Date: 20221020
  Receipt Date: 20221020
  Transmission Date: 20230112
  Serious: Yes (Hospitalization)
  Sender: FDA-Public Use
  Company Number: None

PATIENT
  Age: 70 Year
  Sex: Female
  Weight: 150 kg

DRUGS (8)
  1. ROSUVASTATIN [Suspect]
     Active Substance: ROSUVASTATIN
     Indication: Dyslipidaemia
     Dosage: 10 MG,FREQUENCY TIME : 1 DAYS
     Dates: end: 20220910
  2. SPIRONOLACTONE [Suspect]
     Active Substance: SPIRONOLACTONE
     Indication: Cardiac failure
     Dosage: UNIT DOSE 50 MG, FREQUENCY TIME 1 DAYS
     Dates: end: 20220910
  3. METFORMIN [Suspect]
     Active Substance: METFORMIN HYDROCHLORIDE
     Indication: Type 2 diabetes mellitus
     Dosage: UNIT DOSE 1 GRAM, FREQUENCY TIME : 1 DAYS
     Dates: end: 20220910
  4. DULOXETINE HYDROCHLORIDE [Suspect]
     Active Substance: DULOXETINE HYDROCHLORIDE
     Indication: Product used for unknown indication
     Dosage: UNIT DOSE : 120 MG, FREQUENCY TIME : 1 DAYS
     Dates: end: 20220910
  5. FENTANYL [Suspect]
     Active Substance: FENTANYL
     Indication: Pain
     Dosage: UNIT DOSE :37.5MCG, FREQUENCY TIME : 72 HOURS
     Route: 065
     Dates: start: 202208, end: 20220910
  6. ACUPAN [Suspect]
     Active Substance: NEFOPAM HYDROCHLORIDE
     Indication: Pain
     Dosage: 2 TO 3AMP /D; UNIT DOSE: 1 DF, FREQUENCY TIME : 1 AS REQUIRED
     Dates: start: 20220829, end: 20220907
  7. XARELTO [Suspect]
     Active Substance: RIVAROXABAN
     Indication: Atrial flutter
     Dosage: STRENGTH: 20 MG, UNIT DOSE 1 DF, FREQUENCY TIME : 1 DAYS
     Dates: end: 20220910
  8. BISOPROLOL FUMARATE [Concomitant]
     Active Substance: BISOPROLOL FUMARATE
     Indication: Product used for unknown indication

REACTIONS (3)
  - Metabolic acidosis [Recovered/Resolved]
  - Acute kidney injury [Not Recovered/Not Resolved]
  - Rhabdomyolysis [Recovered/Resolved]

NARRATIVE: CASE EVENT DATE: 20220910
